FAERS Safety Report 13425079 (Version 1)
Quarter: 2017Q2

REPORT INFORMATION
  Report Type: Report from Study
  Country: JP (occurrence: JP)
  Receive Date: 20170411
  Receipt Date: 20170411
  Transmission Date: 20170830
  Serious: Yes (Disabling, Other)
  Sender: FDA-Public Use
  Company Number: JP-AMGEN-JPNSP2016168280

PATIENT
  Age: 83 Year
  Sex: Female

DRUGS (6)
  1. CARFILZOMIB [Suspect]
     Active Substance: CARFILZOMIB
     Indication: PLASMA CELL MYELOMA
     Dosage: 20 MG/M2, QD
     Route: 041
     Dates: start: 20161028, end: 20161029
  2. DEXAMETHASONE. [Concomitant]
     Active Substance: DEXAMETHASONE
     Dosage: UNK
     Dates: start: 20161028, end: 20161104
  3. CARFILZOMIB [Suspect]
     Active Substance: CARFILZOMIB
     Dosage: 27 UNK, UNK
     Route: 041
     Dates: start: 20161104, end: 20161105
  4. LENALIDOMIDE [Concomitant]
     Active Substance: LENALIDOMIDE
     Dosage: UNK
     Dates: start: 20161107, end: 20161110
  5. ACICLOVIR [Concomitant]
     Active Substance: ACYCLOVIR
     Dosage: UNK
     Dates: end: 20170206
  6. LENALIDOMIDE [Concomitant]
     Active Substance: LENALIDOMIDE
     Dosage: UNK
     Dates: start: 20161028, end: 20161031

REACTIONS (4)
  - Haematotoxicity [Recovered/Resolved]
  - Tumour lysis syndrome [Recovered/Resolved]
  - Cardiac disorder [Recovered/Resolved]
  - Infusion related reaction [Recovered/Resolved]

NARRATIVE: CASE EVENT DATE: 2016
